FAERS Safety Report 25985559 (Version 1)
Quarter: 2025Q4

REPORT INFORMATION
  Report Type: Report from Study
  Country: EU (occurrence: EU)
  Receive Date: 20251031
  Receipt Date: 20251031
  Transmission Date: 20260118
  Serious: Yes (Other)
  Sender: MYLAN
  Company Number: EU-MYLANLABS-2025M1080518

PATIENT
  Age: 41 Year
  Sex: Male

DRUGS (9)
  1. CLOZAPINE [Suspect]
     Active Substance: CLOZAPINE
     Indication: Psychotic disorder
     Dosage: 12.5 MILLIGRAM, QD
     Dates: start: 20250811, end: 2025
  2. CLOZAPINE [Suspect]
     Active Substance: CLOZAPINE
     Dosage: 300 MILLIGRAM, QD
     Dates: start: 20250903
  3. Cardace [Concomitant]
     Dosage: 2.5 MILLIGRAM, QD
     Dates: start: 20250524
  4. ROSUVASTATIN [Concomitant]
     Active Substance: ROSUVASTATIN
     Dosage: 10 MILLIGRAM, QD
     Dates: start: 20250811
  5. METOPROLOL [Concomitant]
     Active Substance: METOPROLOL
     Dosage: 23.75 MILLIGRAM, QD
     Dates: start: 20250910
  6. CARIPRAZINE [Concomitant]
     Active Substance: CARIPRAZINE
     Dosage: 4.5 MILLIGRAM
  7. DULOXETINE [Concomitant]
     Active Substance: DULOXETINE
     Dosage: 60 MILLIGRAM, QD
     Dates: start: 20250528
  8. MIRTAZAPINE [Concomitant]
     Active Substance: MIRTAZAPINE
     Dosage: 45 MILLIGRAM, QD
     Dates: start: 20250428
  9. LITHIUM CARBONATE [Concomitant]
     Active Substance: LITHIUM CARBONATE
     Dosage: 600 MILLIGRAM, QD (300MG X2)
     Dates: start: 20250424

REACTIONS (2)
  - Eosinophilia [Recovered/Resolved]
  - Off label use [Unknown]

NARRATIVE: CASE EVENT DATE: 20250811
